FAERS Safety Report 7484188-4 (Version None)
Quarter: 2011Q2

REPORT INFORMATION
  Report Type: 
  Country: None (occurrence: None)
  Receive Date: 20110513
  Receipt Date: 20110513
  Transmission Date: 20111010
  Serious: Yes (Hospitalization)
  Sender: FDA-Public Use
  Company Number: None

PATIENT
  Sex: Female
  Weight: 74 kg

DRUGS (1)
  1. PRADAXA [Suspect]

REACTIONS (4)
  - RECTAL ULCER HAEMORRHAGE [None]
  - PROCEDURAL HYPOTENSION [None]
  - UNRESPONSIVE TO STIMULI [None]
  - IMPLANT SITE HAEMORRHAGE [None]
